FAERS Safety Report 5237240-8 (Version None)
Quarter: 2007Q1

REPORT INFORMATION
  Report Type: 
  Country: None (occurrence: None)
  Receive Date: 20070213
  Receipt Date: 20070206
  Transmission Date: 20070707
  Serious: Yes (Hospitalization)
  Sender: FDA-Public Use
  Company Number: HQWYE910307FEB07

PATIENT
  Age: 70 Year
  Sex: Male

DRUGS (1)
  1. TYGACIL [Suspect]
     Indication: DECUBITUS ULCER
     Dosage: UNKNOWN
     Route: 065

REACTIONS (2)
  - COUGH [None]
  - INCISION SITE INFECTION [None]
